FAERS Safety Report 10947367 (Version 1)
Quarter: 2015Q1

REPORT INFORMATION
  Report Type: Spontaneous
  Country: US (occurrence: US)
  Receive Date: 20150323
  Receipt Date: 20150323
  Transmission Date: 20150721
  Serious: No
  Sender: FDA-Public Use
  Company Number: US-BAUSCH-SYM-2014-14986

PATIENT
  Sex: Female

DRUGS (1)
  1. XENAZINE [Suspect]
     Active Substance: TETRABENAZINE
     Indication: MUCOPOLYSACCHARIDOSIS II
     Dosage: 12.5 MG IN THE MORNING, 25 MG IN THE AFTERNOON AND 12.5 MG IN THE EVENING
     Route: 048
     Dates: start: 20131126

REACTIONS (2)
  - Fatigue [Unknown]
  - Flat affect [Unknown]
